FAERS Safety Report 7273195-2 (Version None)
Quarter: 2011Q1

REPORT INFORMATION
  Report Type: 
  Country: None (occurrence: None)
  Receive Date: 20110203
  Receipt Date: 20110125
  Transmission Date: 20110831
  Serious: Yes (Life-Threatening, Hospitalization)
  Sender: FDA-Public Use
  Company Number: JP-JNJFOC-20110104225

PATIENT
  Age: 60 Year
  Sex: Female
  Weight: 50 kg

DRUGS (16)
  1. PREDNISOLONE [Suspect]
     Route: 048
  2. REMICADE [Suspect]
     Route: 042
  3. PREDNISOLONE [Suspect]
     Route: 048
  4. PREDNISOLONE [Suspect]
     Route: 048
  5. STOGAR [Concomitant]
     Route: 048
  6. ACTONEL [Concomitant]
     Route: 048
  7. REMICADE [Suspect]
     Route: 042
  8. REMICADE [Suspect]
     Route: 042
  9. RHEUMATREX [Suspect]
     Indication: RHEUMATOID ARTHRITIS
     Route: 048
  10. PREDNISOLONE [Suspect]
     Route: 048
  11. REMICADE [Suspect]
     Indication: RHEUMATOID ARTHRITIS
     Route: 042
  12. REMICADE [Suspect]
     Route: 042
  13. PREDNISOLONE [Suspect]
     Indication: PRODUCT USED FOR UNKNOWN INDICATION
     Route: 048
  14. REMICADE [Suspect]
     Route: 042
  15. CELECOXIB [Concomitant]
     Route: 048
  16. FOLIAMIN [Concomitant]
     Route: 048

REACTIONS (3)
  - ASCITES [None]
  - PULMONARY TUBERCULOSIS [None]
  - HEPATIC FUNCTION ABNORMAL [None]
